FAERS Safety Report 6324998-X (Version None)
Quarter: 2009Q3

REPORT INFORMATION
  Report Type: 
  Country: None (occurrence: None)
  Receive Date: 20090824
  Receipt Date: 20090322
  Transmission Date: 20100115
  Serious: No
  Sender: FDA-Public Use
  Company Number: US-ABBOTT-09P-163-0564251-00

PATIENT
  Sex: Female

DRUGS (21)
  1. NIASPAN [Suspect]
     Indication: BLOOD CHOLESTEROL INCREASED
     Dosage: AT BEDTIME, 1 IN 1 D
     Route: 048
     Dates: start: 20090208
  2. LISINOPRIL [Concomitant]
     Indication: DRUG USE FOR UNKNOWN INDICATION
  3. GABAPENTIN [Concomitant]
     Indication: DRUG USE FOR UNKNOWN INDICATION
  4. MVT [Concomitant]
     Indication: DRUG USE FOR UNKNOWN INDICATION
  5. VIT C [Concomitant]
     Indication: DRUG USE FOR UNKNOWN INDICATION
  6. VIT E [Concomitant]
     Indication: DRUG USE FOR UNKNOWN INDICATION
  7. VIT D/DHA [Concomitant]
     Indication: DRUG USE FOR UNKNOWN INDICATION
  8. VITAMIN B COMPLEX CAP [Concomitant]
     Indication: DRUG USE FOR UNKNOWN INDICATION
  9. B COMPLEX B12 [Concomitant]
     Indication: DRUG USE FOR UNKNOWN INDICATION
  10. FOLIC ACID [Concomitant]
     Indication: DRUG USE FOR UNKNOWN INDICATION
  11. CALCIUM [Concomitant]
     Indication: DRUG USE FOR UNKNOWN INDICATION
  12. COQ10 [Concomitant]
     Indication: DRUG USE FOR UNKNOWN INDICATION
  13. B POLLEN [Concomitant]
     Indication: DRUG USE FOR UNKNOWN INDICATION
  14. PAMAGRANIT [Concomitant]
     Indication: DRUG USE FOR UNKNOWN INDICATION
  15. FLAX SEED [Concomitant]
     Indication: DRUG USE FOR UNKNOWN INDICATION
  16. SELENIUM [Concomitant]
     Indication: DRUG USE FOR UNKNOWN INDICATION
  17. CHROMIUM [Concomitant]
     Indication: DRUG USE FOR UNKNOWN INDICATION
  18. MG [Concomitant]
     Indication: DRUG USE FOR UNKNOWN INDICATION
  19. L-CARNITINE [Concomitant]
     Indication: DRUG USE FOR UNKNOWN INDICATION
  20. GARLIC [Concomitant]
     Indication: DRUG USE FOR UNKNOWN INDICATION
  21. CIDER VINAGER [Concomitant]
     Indication: DRUG USE FOR UNKNOWN INDICATION

REACTIONS (7)
  - BURNING SENSATION [None]
  - DIZZINESS [None]
  - FLUSHING [None]
  - GENERALISED ERYTHEMA [None]
  - PARAESTHESIA [None]
  - PRURITUS [None]
  - RASH [None]
